FAERS Safety Report 11475614 (Version 1)
Quarter: 2015Q3

REPORT INFORMATION
  Report Type: Spontaneous
  Country: US (occurrence: US)
  Receive Date: 20150909
  Receipt Date: 20150909
  Transmission Date: 20151125
  Serious: No
  Sender: FDA-Public Use
  Company Number: US-ACTELION PHARMACEUTICALS US, INC.-A-NJ2015-122330

PATIENT
  Age: 79 Year
  Sex: Female

DRUGS (1)
  1. VALCHLOR [Suspect]
     Active Substance: MECHLORETHAMINE
     Indication: MYCOSIS FUNGOIDES
     Dosage: UNK, APPLY DAILY TO AFFECTED AREAS
     Route: 061
     Dates: start: 201507, end: 20150807

REACTIONS (3)
  - Application site vesicles [Unknown]
  - Application site burn [Unknown]
  - Application site pruritus [Unknown]
